FAERS Safety Report 9989502 (Version 2)
Quarter: 2014Q1

REPORT INFORMATION
  Report Type: Report from Study
  Country: US (occurrence: US)
  Receive Date: 20140310
  Receipt Date: 20140310
  Transmission Date: 20141002
  Serious: Yes (Other)
  Sender: FDA-Public Use
  Company Number: US-ABBVIE-13P-163-1116898-00

PATIENT
  Age: 52 Year
  Sex: Female
  Weight: 63.56 kg

DRUGS (11)
  1. HUMIRA [Suspect]
     Indication: RHEUMATOID ARTHRITIS
     Dates: start: 2011, end: 201207
  2. HUMIRA [Suspect]
     Dates: start: 201301, end: 201303
  3. HUMIRA [Suspect]
     Indication: RHEUMATOID ARTHRITIS
     Dates: start: 201207, end: 201212
  4. MULTIVITAMINS [Concomitant]
     Indication: PRODUCT USED FOR UNKNOWN INDICATION
     Route: 048
  5. FLEXERIL [Concomitant]
     Indication: PRODUCT USED FOR UNKNOWN INDICATION
     Dosage: 1 TABLET AT BEDTIME
     Route: 048
  6. NAPROXEN [Concomitant]
     Indication: PRODUCT USED FOR UNKNOWN INDICATION
     Route: 048
  7. SULFAZINE [Concomitant]
     Indication: PRODUCT USED FOR UNKNOWN INDICATION
     Dosage: 2 TABLETS TWICE DAILY
     Route: 048
  8. SULFAZINE [Concomitant]
     Dosage: 1 TABLET TWICE DAILY X 1 WEEK
     Route: 048
  9. SULFAZINE [Concomitant]
     Dosage: 1 TABLET THRICE DAILY X 1 WEEK
     Route: 048
  10. SULFAZINE [Concomitant]
     Dosage: 2 TABLETS TWICE DAILY X 1 WEEK
     Route: 048
  11. MEDROL [Concomitant]
     Indication: PRODUCT USED FOR UNKNOWN INDICATION
     Dosage: USE AS DIRECTED

REACTIONS (3)
  - Drug eruption [Recovered/Resolved]
  - Gastrooesophageal reflux disease [Unknown]
  - Synovitis [Unknown]
